FAERS Safety Report 11555316 (Version 1)
Quarter: 2015Q3

REPORT INFORMATION
  Report Type: Spontaneous
  Country: BR (occurrence: BR)
  Receive Date: 20150925
  Receipt Date: 20150925
  Transmission Date: 20151125
  Serious: Yes (Other)
  Sender: FDA-Public Use
  Company Number: BR-009507513-1509BRA011896

PATIENT
  Sex: Female

DRUGS (1)
  1. MERCILON  CONTI [Suspect]
     Active Substance: DESOGESTREL\ETHINYL ESTRADIOL
     Indication: CONTRACEPTION
     Dosage: 1 TABLET, QD
     Route: 048

REACTIONS (3)
  - Drug dose omission [Unknown]
  - Cholecystectomy [Unknown]
  - Vomiting [Unknown]

NARRATIVE: CASE EVENT DATE: 201509
